FAERS Safety Report 17250779 (Version 2)
Quarter: 2020Q1

REPORT INFORMATION
  Report Type: Report from Study
  Country: US (occurrence: US)
  Receive Date: 20200109
  Receipt Date: 20200121
  Transmission Date: 20200409
  Serious: Yes (Other)
  Sender: FDA-Public Use
  Company Number: US-ROCHE-2469552

PATIENT
  Sex: Female
  Weight: 102.15 kg

DRUGS (14)
  1. ACETAMINOPHEN. [Concomitant]
     Active Substance: ACETAMINOPHEN
     Route: 048
  2. VITAMIN D2 [Concomitant]
     Active Substance: ERGOCALCIFEROL
     Indication: VITAMIN D DEFICIENCY
     Dosage: ONGOING : YES,ONE CAPSULE A WEEK
     Route: 048
     Dates: start: 2018
  3. TIZANIDINE. [Concomitant]
     Active Substance: TIZANIDINE
     Indication: HYPOTONIA
     Dosage: ONGOING : YES ,2 MG EVERY 6 TO 8 HOURS AS NEED
     Route: 048
     Dates: start: 20191209
  4. OCREVUS [Suspect]
     Active Substance: OCRELIZUMAB
     Indication: RELAPSING-REMITTING MULTIPLE SCLEROSIS
     Dosage: NEXT CONSECUTIVE DOSES ON 20/OCT/2017, 30/APR/2018, 30/OCT/2018,26/APR/2019, 25/OCT/2019
     Route: 042
     Dates: start: 20170928
  5. OCREVUS [Suspect]
     Active Substance: OCRELIZUMAB
     Dosage: ONGOING : YES,GIVEN TWICE A YEAR
     Route: 042
     Dates: start: 201710
  6. PRILOSEC [Concomitant]
     Active Substance: OMEPRAZOLE MAGNESIUM
     Indication: GASTROOESOPHAGEAL REFLUX DISEASE
     Route: 048
  7. XANAX [Concomitant]
     Active Substance: ALPRAZOLAM
     Indication: ANXIETY
     Route: 065
  8. TIZANIDINE. [Concomitant]
     Active Substance: TIZANIDINE
     Indication: ARTHRITIS
  9. NORTRIPTYLINE [Concomitant]
     Active Substance: NORTRIPTYLINE
     Indication: DEPRESSION
     Route: 065
  10. SYNTHROID [Concomitant]
     Active Substance: LEVOTHYROXINE SODIUM
     Indication: HYPOTHYROIDISM
     Route: 048
  11. DIPHENHYDRAMINE. [Concomitant]
     Active Substance: DIPHENHYDRAMINE
     Route: 042
  12. OCREVUS [Suspect]
     Active Substance: OCRELIZUMAB
     Route: 042
  13. CRESTOR [Concomitant]
     Active Substance: ROSUVASTATIN CALCIUM
     Indication: BLOOD CHOLESTEROL INCREASED
     Route: 048
     Dates: start: 201907
  14. METHYLPREDNISOLONE. [Concomitant]
     Active Substance: METHYLPREDNISOLONE
     Route: 042

REACTIONS (7)
  - Urinary tract infection [Recovered/Resolved]
  - Blood cholesterol increased [Not Recovered/Not Resolved]
  - Pyrexia [Recovered/Resolved]
  - Fatigue [Recovered/Resolved]
  - Diarrhoea [Recovered/Resolved]
  - Asthenia [Recovered/Resolved]
  - Arthritis [Unknown]

NARRATIVE: CASE EVENT DATE: 2018
